FAERS Safety Report 9367259 (Version 1)
Quarter: 2013Q2

REPORT INFORMATION
  Report Type: Spontaneous
  Country: EG (occurrence: EG)
  Receive Date: 20130625
  Receipt Date: 20130625
  Transmission Date: 20140414
  Serious: Yes (Disabling, Other)
  Sender: FDA-Public Use
  Company Number: EG-ELI_LILLY_AND_COMPANY-EG201306004951

PATIENT
  Sex: Male

DRUGS (2)
  1. HUMULIN 30% REGULAR, 70% NPH [Suspect]
     Indication: DIABETES MELLITUS
     Dosage: 20 IU, BID
     Route: 058
  2. LANTUS [Concomitant]
     Indication: DIABETES MELLITUS

REACTIONS (1)
  - Blindness [Not Recovered/Not Resolved]
